FAERS Safety Report 7635094-3 (Version None)
Quarter: 2011Q3

REPORT INFORMATION
  Report Type: 
  Country: None (occurrence: None)
  Receive Date: 20110718
  Receipt Date: 20110705
  Transmission Date: 20111222
  Serious: Yes (Hospitalization)
  Sender: FDA-Public Use
  Company Number: 2011SP021024

PATIENT
  Age: 17 Year
  Sex: Female
  Weight: 104.3273 kg

DRUGS (9)
  1. FOLIC ACID [Concomitant]
  2. PROVENTIL [Concomitant]
  3. IMPLANON [Suspect]
     Indication: PRODUCT USED FOR UNKNOWN INDICATION
  4. PENICILLIN VK [Concomitant]
  5. SYNTHROID [Concomitant]
  6. EFFEXOR XR [Concomitant]
  7. COUMADIN [Concomitant]
  8. HYDROXYUREA [Concomitant]
  9. SEROQUEL [Concomitant]

REACTIONS (5)
  - BIPOLAR DISORDER [None]
  - MENTAL DISORDER [None]
  - ATTENTION DEFICIT/HYPERACTIVITY DISORDER [None]
  - SUICIDAL IDEATION [None]
  - PERSONALITY DISORDER [None]
